FAERS Safety Report 5811615-8 (Version None)
Quarter: 2008Q3

REPORT INFORMATION
  Report Type: 
  Country: None (occurrence: None)
  Receive Date: 20080714
  Receipt Date: 20080627
  Transmission Date: 20090109
  Serious: Yes (Life-Threatening, Hospitalization)
  Sender: FDA-Public Use
  Company Number: 2008EU001283

PATIENT
  Age: 23 Year
  Sex: Male

DRUGS (3)
  1. PROTOPIC [Suspect]
     Indication: DERMATITIS ATOPIC
     Dosage: 0.1% , BID TOPICAL
     Route: 061
     Dates: start: 20071123
  2. DESLORATADINE [Concomitant]
  3. ATARAX [Concomitant]

REACTIONS (7)
  - DRUG ADMINISTRATION ERROR [None]
  - ENDOCARDITIS [None]
  - GENERAL PHYSICAL HEALTH DETERIORATION [None]
  - PNEUMONITIS [None]
  - SKIN LESION [None]
  - STAPHYLOCOCCAL SEPSIS [None]
  - TRICUSPID VALVE DISEASE [None]
